FAERS Safety Report 20945393 (Version 4)
Quarter: 2022Q3

REPORT INFORMATION
  Report Type: Report from Study
  Country: CA (occurrence: CA)
  Receive Date: 20220610
  Receipt Date: 20220726
  Transmission Date: 20221026
  Serious: Yes (Other)
  Sender: FDA-Public Use
  Company Number: CA-BRISTOL-MYERS SQUIBB COMPANY-2022-030440

PATIENT
  Age: 81 Year
  Sex: Male

DRUGS (13)
  1. OPDIVO [Suspect]
     Active Substance: NIVOLUMAB
     Indication: Pleural mesothelioma malignant
     Dosage: 3 WEEKS
     Route: 042
     Dates: start: 20210923
  2. OPDIVO [Suspect]
     Active Substance: NIVOLUMAB
     Dosage: 3 WEEKS
     Route: 042
     Dates: start: 20210923
  3. OPDIVO [Suspect]
     Active Substance: NIVOLUMAB
     Dosage: BATCH NUMBER ACD3324/ACD3197 AND EXPIRY DATE 31-AUG-2023 ADDED, BATCH NUMBER 1901591/ACD319
     Route: 042
     Dates: start: 20210923
  4. YERVOY [Suspect]
     Active Substance: IPILIMUMAB
     Indication: Benign pleural mesothelioma
     Dosage: 3 WEEKS
     Route: 042
  5. YERVOY [Suspect]
     Active Substance: IPILIMUMAB
     Dosage: 6 WEEKS
     Route: 042
  6. YERVOY [Suspect]
     Active Substance: IPILIMUMAB
     Route: 065
  7. MAGNESIUM [Concomitant]
     Active Substance: MAGNESIUM
     Indication: Product used for unknown indication
     Route: 065
  8. FUROSEMIDE [Concomitant]
     Active Substance: FUROSEMIDE
  9. XARELTO [Concomitant]
     Active Substance: RIVAROXABAN
  10. ROSUVASTATIN [Concomitant]
     Active Substance: ROSUVASTATIN
  11. CHOLECALCIFEROL [Concomitant]
     Active Substance: CHOLECALCIFEROL
  12. VITALUX [CALCIUM PANTOTHENATE;CYANOCOBALAMIN;NICOTINAMIDE;PYRIDOXINE H [Concomitant]
  13. TRAMADOL [Concomitant]
     Active Substance: TRAMADOL
     Indication: Pain
     Dates: start: 202206

REACTIONS (20)
  - Product dose omission issue [Unknown]
  - Aspiration [Recovering/Resolving]
  - Arthralgia [Unknown]
  - Oxygen saturation decreased [Not Recovered/Not Resolved]
  - Nausea [Recovered/Resolved]
  - Blood pressure systolic increased [Not Recovered/Not Resolved]
  - Pain [Not Recovered/Not Resolved]
  - Prescribed overdose [Unknown]
  - Skin disorder [Recovered/Resolved]
  - Lip pain [Unknown]
  - Dyspnoea [Not Recovered/Not Resolved]
  - Fatigue [Unknown]
  - Decreased appetite [Recovering/Resolving]
  - Mouth ulceration [Recovered/Resolved]
  - Myalgia [Unknown]
  - Insomnia [Unknown]
  - Musculoskeletal stiffness [Unknown]
  - Pain [Unknown]
  - Restlessness [Unknown]
  - Off label use [Unknown]

NARRATIVE: CASE EVENT DATE: 20220101
